FAERS Safety Report 17659854 (Version 1)
Quarter: 2020Q2

REPORT INFORMATION
  Report Type: Spontaneous
  Country: US (occurrence: US)
  Receive Date: 20200413
  Receipt Date: 20200413
  Transmission Date: 20200713
  Serious: No
  Sender: FDA-Public Use
  Company Number: US-BION-008166

PATIENT
  Age: 95 Year
  Sex: Female
  Weight: 82 kg

DRUGS (2)
  1. ALEVE [Suspect]
     Active Substance: NAPROXEN SODIUM
     Indication: PRODUCT USED FOR UNKNOWN INDICATION
     Dosage: DOSE: 2 GELS DAILY?DURATION: FOR MONTHS
     Route: 048
  2. ALEVE PM [Concomitant]
     Active Substance: DIPHENHYDRAMINE HYDROCHLORIDE\NAPROXEN SODIUM
     Dosage: 1 CAPLET DAILY?AT NIGHT?DURATION: FOR MONTHS
     Route: 048

REACTIONS (1)
  - Incorrect product administration duration [Not Recovered/Not Resolved]
